FAERS Safety Report 10422022 (Version 1)
Quarter: 2014Q3

REPORT INFORMATION
  Report Type: Spontaneous
  Country: US (occurrence: US)
  Receive Date: 20140901
  Receipt Date: 20140901
  Transmission Date: 20150326
  Serious: No
  Sender: FDA-Public Use
  Company Number: US-ASTRAZENECA-2014SE60069

PATIENT
  Age: 56 Year
  Sex: Female
  Weight: 86.2 kg

DRUGS (12)
  1. SEROQUEL [Suspect]
     Active Substance: QUETIAPINE FUMARATE
     Indication: BIPOLAR DISORDER
     Route: 048
     Dates: start: 2010, end: 2012
  2. SEROQUEL [Suspect]
     Active Substance: QUETIAPINE FUMARATE
     Indication: HYPERSOMNIA
     Dosage: GENERIC
     Route: 048
  3. SEROQUEL [Suspect]
     Active Substance: QUETIAPINE FUMARATE
     Indication: BIPOLAR DISORDER
     Route: 048
  4. LORAZEPAM. [Concomitant]
     Active Substance: LORAZEPAM
     Indication: ANXIETY
     Dosage: NR NR
  5. SEROQUEL [Suspect]
     Active Substance: QUETIAPINE FUMARATE
     Indication: BIPOLAR DISORDER
     Route: 048
  6. SEROQUEL [Suspect]
     Active Substance: QUETIAPINE FUMARATE
     Indication: BIPOLAR DISORDER
     Route: 048
     Dates: start: 201407
  7. SEROQUEL [Suspect]
     Active Substance: QUETIAPINE FUMARATE
     Indication: HYPERSOMNIA
     Route: 048
  8. SEROQUEL [Suspect]
     Active Substance: QUETIAPINE FUMARATE
     Indication: HYPERSOMNIA
     Route: 048
     Dates: start: 2010, end: 2012
  9. SEROQUEL [Suspect]
     Active Substance: QUETIAPINE FUMARATE
     Indication: BIPOLAR DISORDER
     Dosage: GENERIC
     Route: 048
  10. SEROQUEL [Suspect]
     Active Substance: QUETIAPINE FUMARATE
     Indication: HYPERSOMNIA
     Route: 048
     Dates: start: 201407
  11. RESTORIL [Concomitant]
     Active Substance: TEMAZEPAM
     Indication: HYPERSOMNIA
     Dosage: NR NR
  12. SEROQUEL [Suspect]
     Active Substance: QUETIAPINE FUMARATE
     Indication: HYPERSOMNIA
     Route: 048

REACTIONS (11)
  - Body height decreased [Not Recovered/Not Resolved]
  - Decreased interest [Recovered/Resolved]
  - Sinus disorder [Not Recovered/Not Resolved]
  - Somnolence [Unknown]
  - Mania [Unknown]
  - Weight increased [Not Recovered/Not Resolved]
  - Off label use [Not Recovered/Not Resolved]
  - Drug ineffective [Recovered/Resolved]
  - Apathy [Recovered/Resolved]
  - Dry mouth [Not Recovered/Not Resolved]
  - Blood cholesterol increased [Not Recovered/Not Resolved]
